FAERS Safety Report 6663624-7 (Version None)
Quarter: 2010Q1

REPORT INFORMATION
  Report Type: 
  Country: None (occurrence: None)
  Receive Date: 20100331
  Receipt Date: 20100331
  Transmission Date: 20100710
  Serious: Yes (Hospitalization)
  Sender: FDA-Public Use
  Company Number: None

PATIENT
  Age: 37 Year
  Sex: Female
  Weight: 50 kg

DRUGS (1)
  1. VIREAD [Suspect]
     Indication: HEPATITIS B
     Dosage: 300 MG DAILY PO
     Route: 048
     Dates: start: 20100202, end: 20100212

REACTIONS (2)
  - ABDOMINAL PAIN [None]
  - BLOOD CREATININE INCREASED [None]
